FAERS Safety Report 19046606 (Version 1)
Quarter: 2021Q1

REPORT INFORMATION
  Report Type: Spontaneous
  Country: US (occurrence: US)
  Receive Date: 20210322
  Receipt Date: 20210322
  Transmission Date: 20210420
  Serious: Yes (Hospitalization, Other)
  Sender: FDA-Public Use
  Company Number: US-SA-2021SA087087

PATIENT
  Age: 74 Year
  Sex: Female
  Weight: 76.6 kg

DRUGS (3)
  1. PLAVIX [Suspect]
     Active Substance: CLOPIDOGREL BISULFATE
     Indication: COAGULOPATHY
     Dosage: 75 MG, QD
     Route: 065
  2. PLAVIX [Suspect]
     Active Substance: CLOPIDOGREL BISULFATE
     Indication: CARDIAC DISORDER
  3. XYZAL [Concomitant]
     Active Substance: LEVOCETIRIZINE DIHYDROCHLORIDE
     Indication: HYPERSENSITIVITY
     Dosage: UNK UNK, HS
     Route: 065

REACTIONS (6)
  - Blindness unilateral [Unknown]
  - Plasma cell disorder [Unknown]
  - Hereditary angioedema [Unknown]
  - Pharyngeal swelling [Unknown]
  - Pain [Unknown]
  - Visual impairment [Unknown]
